FAERS Safety Report 11337695 (Version 2)
Quarter: 2015Q3

REPORT INFORMATION
  Report Type: Spontaneous
  Country: US (occurrence: US)
  Receive Date: 20150803
  Receipt Date: 20150831
  Transmission Date: 20151125
  Serious: No
  Sender: FDA-Public Use
  Company Number: US-ELI_LILLY_AND_COMPANY-US200910007986

PATIENT
  Sex: Female

DRUGS (3)
  1. TOFRANIL [Concomitant]
     Active Substance: IMIPRAMINE HYDROCHLORIDE
  2. CYMBALTA [Suspect]
     Active Substance: DULOXETINE HYDROCHLORIDE
     Indication: DEPRESSION
     Dosage: 60 MG, DAILY (1/D)
     Dates: start: 200908
  3. ZYPREXA ZYDIS [Suspect]
     Active Substance: OLANZAPINE
     Indication: BIPOLAR DISORDER
     Dosage: 20 MG, DAILY (1/D)
     Dates: start: 200908

REACTIONS (11)
  - Hyperhidrosis [Unknown]
  - Feeling abnormal [Unknown]
  - Blood pressure increased [Unknown]
  - Palpitations [Unknown]
  - Fear [Unknown]
  - Drug interaction [Unknown]
  - Mydriasis [Unknown]
  - Dry mouth [Unknown]
  - Tremor [Unknown]
  - Weight increased [Recovered/Resolved]
  - Constipation [Unknown]

NARRATIVE: CASE EVENT DATE: 2009
